FAERS Safety Report 6846626-7 (Version None)
Quarter: 2010Q3

REPORT INFORMATION
  Report Type: 
  Country: None (occurrence: None)
  Receive Date: 20100715
  Receipt Date: 20070918
  Transmission Date: 20110219
  Serious: No
  Sender: FDA-Public Use
  Company Number: US-PFIZER INC-2007079398

PATIENT
  Sex: Male
  Weight: 115.9 kg

DRUGS (3)
  1. CHANTIX [Suspect]
     Indication: SMOKING CESSATION THERAPY
     Dates: start: 20070801
  2. NAPROXEN [Concomitant]
  3. SOMA [Concomitant]

REACTIONS (1)
  - ANGER [None]
